FAERS Safety Report 7251482-1 (Version None)
Quarter: 2011Q1

REPORT INFORMATION
  Report Type: 
  Country: None (occurrence: None)
  Receive Date: 20110128
  Receipt Date: 20110120
  Transmission Date: 20110831
  Serious: Yes (Other)
  Sender: FDA-Public Use
  Company Number: PHHY2010US81896

PATIENT
  Sex: Male

DRUGS (1)
  1. FEMARA [Suspect]

REACTIONS (1)
  - UTERINE PROLAPSE [None]
